FAERS Safety Report 6008588-4 (Version None)
Quarter: 2008Q4

REPORT INFORMATION
  Report Type: 
  Country: None (occurrence: None)
  Receive Date: 20081217
  Receipt Date: 20041104
  Transmission Date: 20090506
  Serious: Yes (Other)
  Sender: FDA-Public Use
  Company Number: US-BAXTER-2008BH010206

PATIENT
  Sex: Female

DRUGS (3)
  1. POLYGAM [Suspect]
     Indication: DEMYELINATING POLYNEUROPATHY
     Route: 042
  2. VENOGLOBULIN [Suspect]
     Indication: DEMYELINATING POLYNEUROPATHY
     Route: 042
  3. GAMMAR-P I.V. [Suspect]
     Indication: DEMYELINATING POLYNEUROPATHY
     Route: 042

REACTIONS (2)
  - ALLERGIC TRANSFUSION REACTION [None]
  - ANAPHYLACTIC REACTION [None]
